FAERS Safety Report 17717014 (Version 2)
Quarter: 2020Q2

REPORT INFORMATION
  Report Type: Report from Study
  Country: US (occurrence: US)
  Receive Date: 20200428
  Receipt Date: 20200429
  Transmission Date: 20200714
  Serious: No
  Sender: FDA-Public Use
  Company Number: US-SA-2020SA107182

PATIENT
  Age: 29 Year
  Sex: Female

DRUGS (3)
  1. DUPILUMAB [Suspect]
     Active Substance: DUPILUMAB
     Indication: NASAL POLYPS
     Dosage: 2 DF, 1X
     Route: 058
     Dates: start: 20200329, end: 20200329
  2. DUPILUMAB [Suspect]
     Active Substance: DUPILUMAB
     Indication: HYPERSENSITIVITY
  3. DUPILUMAB [Suspect]
     Active Substance: DUPILUMAB
     Indication: ASTHMA
     Dosage: 300 MG, QOW
     Route: 058
     Dates: start: 202004

REACTIONS (2)
  - Product use in unapproved indication [Unknown]
  - Injection site mass [Unknown]

NARRATIVE: CASE EVENT DATE: 20200329
